FAERS Safety Report 25342225 (Version 1)
Quarter: 2025Q2

REPORT INFORMATION
  Report Type: Spontaneous
  Country: CA (occurrence: CA)
  Receive Date: 20250521
  Receipt Date: 20250521
  Transmission Date: 20250717
  Serious: Yes (Hospitalization, Other)
  Sender: NOVARTIS
  Company Number: CA-002147023-NVSC2025CA079013

PATIENT
  Age: 86 Year
  Sex: Male

DRUGS (5)
  1. ENTRESTO [Suspect]
     Active Substance: SACUBITRIL\VALSARTAN
     Indication: Hypotension
     Dosage: UNK, QD
     Route: 065
  2. ENTRESTO [Suspect]
     Active Substance: SACUBITRIL\VALSARTAN
     Dosage: UNK, BID
     Route: 065
  3. FUROSEMIDE [Suspect]
     Active Substance: FUROSEMIDE
     Indication: Product used for unknown indication
     Dosage: 120 MG, BID
     Route: 065
  4. FUROSEMIDE [Suspect]
     Active Substance: FUROSEMIDE
     Dosage: 80 MG, BID
     Route: 065
  5. VYNDAQEL [Concomitant]
     Active Substance: TAFAMIDIS MEGLUMINE
     Indication: Cardiac amyloidosis
     Dosage: 80 MG, QD
     Route: 048
     Dates: start: 20240118

REACTIONS (16)
  - Blood urea increased [Unknown]
  - Cardiac failure [Unknown]
  - Anaemia [Unknown]
  - Condition aggravated [Unknown]
  - Polyp [Unknown]
  - Limb discomfort [Unknown]
  - Blood uric acid increased [Unknown]
  - Haemoglobin decreased [Unknown]
  - Oedema peripheral [Unknown]
  - Blood glucose increased [Unknown]
  - Red cell distribution width increased [Unknown]
  - Red blood cell count decreased [Unknown]
  - Haematocrit decreased [Unknown]
  - Lymphocyte count decreased [Unknown]
  - N-terminal prohormone brain natriuretic peptide increased [Unknown]
  - Iron deficiency [Unknown]

NARRATIVE: CASE EVENT DATE: 20250218
